FAERS Safety Report 8435244-5 (Version None)
Quarter: 2012Q2

REPORT INFORMATION
  Report Type: 
  Country: None (occurrence: None)
  Receive Date: 20120608
  Receipt Date: 20120608
  Transmission Date: 20120825
  Serious: Yes (Other)
  Sender: FDA-Public Use
  Company Number: None

PATIENT
  Age: 60 Year
  Sex: Female
  Weight: 108.8633 kg

DRUGS (1)
  1. CHANTIX [Suspect]
     Indication: SMOKING CESSATION THERAPY
     Dosage: 1 MG 2 X DAY PO
     Route: 048
     Dates: start: 20120521, end: 20120531

REACTIONS (3)
  - MUSCLE SPASMS [None]
  - PAIN [None]
  - DRUG LEVEL CHANGED [None]
